FAERS Safety Report 10989222 (Version 2)
Quarter: 2015Q2

REPORT INFORMATION
  Report Type: Spontaneous
  Country: US (occurrence: US)
  Receive Date: 20150406
  Receipt Date: 20150514
  Transmission Date: 20150821
  Serious: Yes (Hospitalization)
  Sender: FDA-Public Use
  Company Number: US-AUROBINDO-AUR-APL-2015-02962

PATIENT
  Age: 64 Year
  Sex: Male

DRUGS (5)
  1. GLIPIZIDE. [Suspect]
     Active Substance: GLIPIZIDE
     Indication: DIABETES MELLITUS
     Dosage: 5 MG, UNK (TWO IN MORNING AND TWO AT NIGHT)
     Route: 065
     Dates: start: 2004, end: 201305
  2. NEXIUM [Concomitant]
     Active Substance: ESOMEPRAZOLE MAGNESIUM
     Indication: PRODUCT USED FOR UNKNOWN INDICATION
     Dosage: UNK
     Route: 065
     Dates: start: 2006
  3. METFORMIN [Suspect]
     Active Substance: METFORMIN HYDROCHLORIDE
     Indication: DIABETES MELLITUS
     Dosage: 1000 MG, TWO TIMES A DAY (ONCE IN MORNING AND ONCE IN EVENING)
     Route: 065
     Dates: start: 2004, end: 201305
  4. SPIRONOLACTONE. [Concomitant]
     Active Substance: SPIRONOLACTONE
     Indication: PRODUCT USED FOR UNKNOWN INDICATION
     Dosage: UNK
     Route: 065
  5. LEVOTHYROXINE [Concomitant]
     Active Substance: LEVOTHYROXINE
     Indication: PRODUCT USED FOR UNKNOWN INDICATION
     Dosage: UNK
     Route: 065

REACTIONS (7)
  - Liver disorder [Not Recovered/Not Resolved]
  - Varices oesophageal [Recovered/Resolved]
  - Hepatic cirrhosis [Unknown]
  - Gastrointestinal haemorrhage [Recovered/Resolved]
  - Incarcerated hernia [Unknown]
  - Ischaemia [Unknown]
  - Liver operation [Unknown]

NARRATIVE: CASE EVENT DATE: 201303
